FAERS Safety Report 17685624 (Version 4)
Quarter: 2022Q1

REPORT INFORMATION
  Report Type: Spontaneous
  Country: CA (occurrence: CA)
  Receive Date: 20200420
  Receipt Date: 20220324
  Transmission Date: 20220424
  Serious: Yes (Death, Hospitalization, Other)
  Sender: FDA-Public Use
  Company Number: CA-SAMSUNG BIOEPIS-SB-2020-12826

PATIENT
  Age: 70 Year
  Sex: Male
  Weight: 80 kg

DRUGS (17)
  1. INFLIXIMAB [Suspect]
     Active Substance: INFLIXIMAB
     Indication: Colitis ulcerative
     Route: 042
  2. ASPIRIN [Concomitant]
     Active Substance: ASPIRIN
     Indication: Product used for unknown indication
     Route: 048
  3. AZATHIOPRINE [Concomitant]
     Active Substance: AZATHIOPRINE
     Indication: Product used for unknown indication
     Route: 048
  4. AZATHIOPRINE [Concomitant]
     Active Substance: AZATHIOPRINE
     Route: 048
  5. DIPHENHYDRAMINE [Concomitant]
     Active Substance: DIPHENHYDRAMINE
     Indication: Premedication
     Route: 065
  6. ENOXAPARIN [Concomitant]
     Active Substance: ENOXAPARIN
     Indication: Product used for unknown indication
     Dosage: UNKNOWN
     Route: 065
  7. ERGOCALCIFEROL [Concomitant]
     Active Substance: ERGOCALCIFEROL
     Indication: Product used for unknown indication
     Route: 048
  8. ERGOCALCIFEROL [Concomitant]
     Active Substance: ERGOCALCIFEROL
     Route: 048
  9. GLUCAGON [Concomitant]
     Active Substance: GLUCAGON
     Indication: Product used for unknown indication
     Route: 065
  10. LEVODOPA [Concomitant]
     Active Substance: LEVODOPA
     Indication: Product used for unknown indication
     Route: 048
  11. LEVODOPA [Concomitant]
     Active Substance: LEVODOPA
     Route: 048
  12. PREDNISONE [Concomitant]
     Active Substance: PREDNISONE
     Indication: Product used for unknown indication
     Route: 048
  13. PREDNISONE [Concomitant]
     Active Substance: PREDNISONE
     Route: 048
  14. TEMAZEPAM [Concomitant]
     Active Substance: TEMAZEPAM
     Indication: Product used for unknown indication
     Dosage: UNKNOWN
     Route: 048
  15. VENLAFAXINE HYDROCHLORIDE [Concomitant]
     Active Substance: VENLAFAXINE HYDROCHLORIDE
     Indication: Product used for unknown indication
     Route: 048
  16. INSULIN [HUMAN] [Concomitant]
     Indication: Product used for unknown indication
     Dosage: UNKNOWN
     Route: 065
  17. INSULIN [HUMAN] [Concomitant]
     Route: 065

REACTIONS (21)
  - Death [Fatal]
  - Asthenia [Fatal]
  - Condition aggravated [Fatal]
  - Dehydration [Fatal]
  - Diarrhoea [Fatal]
  - Fall [Fatal]
  - Gait disturbance [Fatal]
  - Joint injury [Fatal]
  - Malaise [Fatal]
  - Muscular weakness [Fatal]
  - Parkinson^s disease [Fatal]
  - Poor venous access [Fatal]
  - Feeling abnormal [Fatal]
  - Heart rate increased [Fatal]
  - Blood pressure increased [Fatal]
  - Confusional state [Fatal]
  - Haematochezia [Fatal]
  - Regurgitation [Fatal]
  - Incorrect dose administered [Fatal]
  - Off label use [Fatal]
  - Inappropriate schedule of product administration [Fatal]
